FAERS Safety Report 6902238-8 (Version None)
Quarter: 2010Q3

REPORT INFORMATION
  Report Type: 
  Country: None (occurrence: None)
  Receive Date: 20100803
  Receipt Date: 20080506
  Transmission Date: 20110219
  Serious: No
  Sender: FDA-Public Use
  Company Number: US-PFIZER INC-2008039853

PATIENT
  Sex: Female
  Weight: 52.2 kg

DRUGS (2)
  1. LYRICA [Suspect]
     Indication: NEUROPATHY PERIPHERAL
     Dates: start: 20070101, end: 20070101
  2. DRUG, UNSPECIFIED [Concomitant]

REACTIONS (1)
  - DRUG INEFFECTIVE [None]
